FAERS Safety Report 8479183-2 (Version None)
Quarter: 2012Q2

REPORT INFORMATION
  Report Type: 
  Country: None (occurrence: None)
  Receive Date: 20120629
  Receipt Date: 20120625
  Transmission Date: 20120825
  Serious: Yes (Life-Threatening, Other)
  Sender: FDA-Public Use
  Company Number: CA-JNJFOC-20120612433

PATIENT

DRUGS (2)
  1. INVEGA SUSTENNA [Suspect]
     Indication: PRODUCT USED FOR UNKNOWN INDICATION
     Dosage: INITIATED AN DAY-8, AFTER INITIATION DOSE
     Route: 030
  2. INVEGA SUSTENNA [Suspect]
     Route: 030

REACTIONS (1)
  - SUICIDE ATTEMPT [None]
